FAERS Safety Report 10332833 (Version 2)
Quarter: 2014Q3

REPORT INFORMATION
  Report Type: Report from Study
  Country: US (occurrence: US)
  Receive Date: 20140722
  Receipt Date: 20140722
  Transmission Date: 20150326
  Serious: Yes (Hospitalization, Other)
  Sender: FDA-Public Use
  Company Number: US-TEVA-473463USA

PATIENT
  Age: 42 Year
  Sex: Male

DRUGS (2)
  1. COPAXONE [Suspect]
     Active Substance: GLATIRAMER ACETATE
     Indication: MULTIPLE SCLEROSIS
     Dates: start: 20120405
  2. FORTEO [Suspect]
     Active Substance: TERIPARATIDE

REACTIONS (1)
  - Huerthle cell carcinoma [Recovering/Resolving]

NARRATIVE: CASE EVENT DATE: 20140216
